FAERS Safety Report 17585893 (Version 7)
Quarter: 2020Q4

REPORT INFORMATION
  Report Type: Report from Study
  Country: US (occurrence: US)
  Receive Date: 20200326
  Receipt Date: 20201007
  Transmission Date: 20210113
  Serious: Yes (Hospitalization, Other)
  Sender: FDA-Public Use
  Company Number: US-GLAXOSMITHKLINE-US2019TSO196294

PATIENT
  Age: 70 Year
  Sex: Female

DRUGS (6)
  1. NIRAPARIB [Suspect]
     Active Substance: NIRAPARIB
     Dosage: 100 MG DAILY
     Route: 048
     Dates: start: 20200216
  2. NIRAPARIB [Suspect]
     Active Substance: NIRAPARIB
     Dosage: 200 MG HS WITH SNACK
     Dates: start: 20200110
  3. NIRAPARIB [Suspect]
     Active Substance: NIRAPARIB
     Indication: MALIGNANT PERITONEAL NEOPLASM
     Dosage: 200 MG, QD
     Route: 048
     Dates: start: 20191027, end: 20191219
  4. NIRAPARIB [Suspect]
     Active Substance: NIRAPARIB
     Dosage: UNK, 200MG ALTERNATING WITH 100MG
     Dates: start: 20200528, end: 20200630
  5. NIRAPARIB [Suspect]
     Active Substance: NIRAPARIB
     Dosage: 100MG ALTERNATING WITH 200MG EVERY OTHER DAY
  6. MIRALAX [Concomitant]
     Active Substance: POLYETHYLENE GLYCOL 3350
     Indication: CONSTIPATION
     Dosage: UNK

REACTIONS (20)
  - Blood pressure increased [Recovered/Resolved]
  - Fatigue [Not Recovered/Not Resolved]
  - Anaemia [Not Recovered/Not Resolved]
  - Asthenia [Unknown]
  - Off label use [Unknown]
  - Palpitations [Recovered/Resolved]
  - Dry mouth [Recovering/Resolving]
  - Carbohydrate antigen 125 increased [Unknown]
  - Back pain [Recovering/Resolving]
  - Pain [Unknown]
  - Herpes zoster [Unknown]
  - Underdose [Unknown]
  - Back disorder [Not Recovered/Not Resolved]
  - Chills [Unknown]
  - Spinal fracture [Unknown]
  - Malaise [Unknown]
  - Inappropriate schedule of product administration [Unknown]
  - Product dose omission issue [Unknown]
  - Platelet count decreased [Not Recovered/Not Resolved]
  - Nausea [Unknown]

NARRATIVE: CASE EVENT DATE: 20191220
